FAERS Safety Report 17890514 (Version 2)
Quarter: 2020Q2

REPORT INFORMATION
  Report Type: Spontaneous
  Country: SE (occurrence: SE)
  Receive Date: 20200612
  Receipt Date: 20200626
  Transmission Date: 20200714
  Serious: Yes (Death, Other)
  Sender: FDA-Public Use
  Company Number: SE-BAYER-2020-073431

PATIENT

DRUGS (14)
  1. CILAXORAL [Concomitant]
     Active Substance: SODIUM PICOSULFATE
  2. HYDROCHLOORTHIAZIDE [Concomitant]
     Active Substance: HYDROCHLOROTHIAZIDE
  3. DICLOFENAC [Concomitant]
     Active Substance: DICLOFENAC
  4. OXASCAND [Concomitant]
     Active Substance: OXAZEPAM
  5. XOFIGO [Suspect]
     Active Substance: RADIUM RA-223 DICHLORIDE
     Indication: PROSTATE CANCER
     Dosage: UNK
     Dates: start: 20200302, end: 20200302
  6. XOFIGO [Suspect]
     Active Substance: RADIUM RA-223 DICHLORIDE
     Indication: PROSTATE CANCER
     Dosage: UNK
     Dates: start: 20200330, end: 20200330
  7. BETAPRED [Concomitant]
     Active Substance: BETAMETHASONE SODIUM PHOSPHATE
  8. PRIMPERAN [Concomitant]
     Active Substance: METOCLOPRAMIDE HYDROCHLORIDE
  9. CALCICHEW [Concomitant]
     Active Substance: CALCIUM CARBONATE
  10. PAMORELIN [Concomitant]
     Active Substance: TRIPTORELIN PAMOATE
  11. OMEPRAZOLE. [Concomitant]
     Active Substance: OMEPRAZOLE
  12. XGEVA [Concomitant]
     Active Substance: DENOSUMAB
  13. TARGINIQ ER [Concomitant]
     Active Substance: NALOXONE HYDROCHLORIDE\OXYCODONE HYDROCHLORIDE
  14. ALVEDON [Concomitant]
     Active Substance: ACETAMINOPHEN

REACTIONS (6)
  - Prostatic specific antigen increased [None]
  - Haemoglobin decreased [None]
  - White blood cell count decreased [None]
  - Prostate cancer metastatic [Fatal]
  - Neutrophil count decreased [None]
  - Platelet count decreased [None]

NARRATIVE: CASE EVENT DATE: 20200318
